FAERS Safety Report 9422501 (Version 1)
Quarter: 2013Q3

REPORT INFORMATION
  Report Type: Spontaneous
  Country: US (occurrence: None)
  Receive Date: 20130725
  Receipt Date: 20130725
  Transmission Date: 20140515
  Serious: Yes (Other)
  Sender: FDA-Public Use
  Company Number: None

PATIENT
  Age: 41 Year
  Sex: Female
  Weight: 122.47 kg

DRUGS (4)
  1. VENLAFAXINE [Suspect]
     Route: 048
  2. VENLAFAXINE [Suspect]
     Route: 048
  3. CYMBALTA [Concomitant]
  4. GENERIC WELLBUTRIN [Concomitant]

REACTIONS (4)
  - Depression [None]
  - No therapeutic response [None]
  - Therapeutic response unexpected with drug substitution [None]
  - Product substitution issue [None]
